FAERS Safety Report 8496259-4 (Version None)
Quarter: 2012Q3

REPORT INFORMATION
  Report Type: 
  Country: None (occurrence: None)
  Receive Date: 20120709
  Receipt Date: 20120627
  Transmission Date: 20120928
  Serious: No
  Sender: FDA-Public Use
  Company Number: JP-UCBSA-060972

PATIENT

DRUGS (1)
  1. KEPPRA [Suspect]
     Route: 048

REACTIONS (3)
  - NEUTROPHIL COUNT DECREASED [None]
  - GRANULOCYTE COUNT DECREASED [None]
  - WHITE BLOOD CELL COUNT DECREASED [None]
